FAERS Safety Report 23037139 (Version 1)
Quarter: 2023Q4

REPORT INFORMATION
  Report Type: Spontaneous
  Country: GB (occurrence: GB)
  Receive Date: 20231006
  Receipt Date: 20231006
  Transmission Date: 20240110
  Serious: No
  Sender: FDA-Public Use
  Company Number: None

PATIENT
  Age: 46 Year
  Sex: Male
  Weight: 73 kg

DRUGS (8)
  1. IBUPROFEN [Suspect]
     Active Substance: IBUPROFEN
     Indication: Product used for unknown indication
     Dosage: UNK (TABLET)
     Route: 065
  2. EZETIMIBE [Concomitant]
     Active Substance: EZETIMIBE
     Indication: Product used for unknown indication
     Dosage: UNK, QD (16:30-1 TABLETS)
     Route: 065
     Dates: start: 20220721, end: 20220804
  3. Flexitol heel balm [Concomitant]
     Indication: Product used for unknown indication
     Dosage: UNK, BID (1 APPLICATION - ADMIN TIMES: 08:00, 16:30)
     Route: 065
     Dates: start: 20220721, end: 20220804
  4. METFORMIN [Concomitant]
     Active Substance: METFORMIN HYDROCHLORIDE
     Indication: Product used for unknown indication
     Dosage: UNK, BID (08:00-1 TABLETS) (16:30-1 TABLETS)
     Route: 065
     Dates: start: 20220721, end: 20220804
  5. ACETAMINOPHEN [Concomitant]
     Active Substance: ACETAMINOPHEN
     Indication: Product used for unknown indication
     Dosage: 2 DOSAGE FORM
     Route: 065
     Dates: start: 20220709, end: 20220714
  6. ROSUVASTATIN [Concomitant]
     Active Substance: ROSUVASTATIN
     Indication: Product used for unknown indication
     Dosage: UNK, QD (16:30-1 TABLETS)
     Route: 065
     Dates: start: 20220721, end: 20220804
  7. SITAGLIPTIN [Concomitant]
     Active Substance: SITAGLIPTIN
     Indication: Product used for unknown indication
     Dosage: UNK, QD (08:00-1 TABLETS)
     Route: 065
     Dates: start: 20220721, end: 20220804
  8. TERBINAFINE [Concomitant]
     Active Substance: TERBINAFINE
     Indication: Product used for unknown indication
     Dosage: UNK, BID (1 APPLICATION - ADMIN TIMES: 08:00, 16:30)
     Route: 065
     Dates: start: 20220721, end: 20220731

REACTIONS (1)
  - Urticaria [Recovering/Resolving]
